FAERS Safety Report 5987976-6 (Version None)
Quarter: 2008Q4

REPORT INFORMATION
  Report Type: 
  Country: None (occurrence: None)
  Receive Date: 20081210
  Receipt Date: 20080415
  Transmission Date: 20090506
  Serious: No
  Sender: FDA-Public Use
  Company Number: US-AMGEN-KDL274634

PATIENT
  Sex: Female

DRUGS (3)
  1. ENBREL [Suspect]
     Indication: RHEUMATOID ARTHRITIS
     Route: 058
     Dates: start: 20020101
  2. ENBREL [Suspect]
     Indication: SYSTEMIC LUPUS ERYTHEMATOSUS
  3. PLAQUENIL [Concomitant]
     Dates: start: 20030101

REACTIONS (12)
  - ABDOMINAL ADHESIONS [None]
  - ANAEMIA [None]
  - ASTHENIA [None]
  - DIARRHOEA [None]
  - INJECTION SITE PAIN [None]
  - LEUKOCYTOSIS [None]
  - PAIN [None]
  - RHEUMATOID ARTHRITIS [None]
  - SINUSITIS [None]
  - TOOTH ABSCESS [None]
  - VIRAL INFECTION [None]
  - VOMITING [None]
